FAERS Safety Report 15407773 (Version 1)
Quarter: 2018Q3

REPORT INFORMATION
  Report Type: Report from Study
  Country: US (occurrence: US)
  Receive Date: 20180920
  Receipt Date: 20180920
  Transmission Date: 20181010
  Serious: Yes (Death, Hospitalization)
  Sender: FDA-Public Use
  Company Number: US-JNJFOC-20180822997

PATIENT
  Age: 82 Year
  Sex: Male

DRUGS (12)
  1. ALLOPURINOL. [Concomitant]
     Active Substance: ALLOPURINOL
  2. FOLIC ACID. [Concomitant]
     Active Substance: FOLIC ACID
  3. FAMOTIDINE. [Concomitant]
     Active Substance: FAMOTIDINE
  4. FUROSEMIDE. [Concomitant]
     Active Substance: FUROSEMIDE
  5. METOPROLOL SUCCINATE. [Concomitant]
     Active Substance: METOPROLOL SUCCINATE
  6. IMBRUVICA [Suspect]
     Active Substance: IBRUTINIB
     Indication: CHRONIC LYMPHOCYTIC LEUKAEMIA
     Route: 048
     Dates: start: 20180810
  7. METFORMIN [Concomitant]
     Active Substance: METFORMIN HYDROCHLORIDE
  8. ASPIRIN. [Concomitant]
     Active Substance: ASPIRIN
  9. PIOGLITAZONE. [Concomitant]
     Active Substance: PIOGLITAZONE
  10. LOSARTAN. [Concomitant]
     Active Substance: LOSARTAN
  11. ATORVASTATIN [Concomitant]
     Active Substance: ATORVASTATIN
  12. GLIMEPIRIDE. [Concomitant]
     Active Substance: GLIMEPIRIDE

REACTIONS (8)
  - Pneumothorax [Fatal]
  - Tumour lysis syndrome [Unknown]
  - Thrombocytopenia [Unknown]
  - Sepsis [Fatal]
  - Pneumonia [Unknown]
  - White blood cell count increased [Unknown]
  - Anaemia [Unknown]
  - Acute kidney injury [Fatal]

NARRATIVE: CASE EVENT DATE: 20180812
